FAERS Safety Report 24002784 (Version 1)
Quarter: 2024Q2

REPORT INFORMATION
  Report Type: Spontaneous
  Country: US (occurrence: US)
  Receive Date: 20240624
  Receipt Date: 20240624
  Transmission Date: 20240716
  Serious: No
  Sender: FDA-Public Use
  Company Number: US-SUN PHARMACEUTICAL INDUSTRIES LTD-2023R1-401214

PATIENT
  Sex: Male

DRUGS (1)
  1. GUAIFENESIN\PSEUDOEPHEDRINE HYDROCHLORIDE [Suspect]
     Active Substance: GUAIFENESIN\PSEUDOEPHEDRINE HYDROCHLORIDE
     Indication: Secretion discharge
     Dosage: UNK
     Route: 048
     Dates: end: 20230724

REACTIONS (4)
  - Drug ineffective [Unknown]
  - Palpitations [Unknown]
  - Hypertension [Unknown]
  - Insomnia [Unknown]
